FAERS Safety Report 25230125 (Version 1)
Quarter: 2025Q2

REPORT INFORMATION
  Report Type: Spontaneous
  Country: CA (occurrence: CA)
  Receive Date: 20250423
  Receipt Date: 20250423
  Transmission Date: 20250716
  Serious: Yes (Other)
  Sender: PFIZER
  Company Number: CA-PFIZER INC-202500082454

PATIENT
  Age: 37 Year
  Sex: Female

DRUGS (4)
  1. NURTEC ODT [Suspect]
     Active Substance: RIMEGEPANT SULFATE
     Indication: Migraine
     Dosage: 75 MG, DAILY
     Route: 048
  2. TOPIRAMATE [Concomitant]
     Active Substance: TOPIRAMATE
  3. CLONAZEPAM [Concomitant]
     Active Substance: CLONAZEPAM
  4. CANDESARTAN [Concomitant]
     Active Substance: CANDESARTAN

REACTIONS (1)
  - Seizure [Recovered/Resolved]
